FAERS Safety Report 8794373 (Version 1)
Quarter: 2012Q4

REPORT INFORMATION
  Report Type: 
  Country: US (occurrence: US)
  Receive Date: 20120917
  Receipt Date: 20120917
  Transmission Date: 20130627
  Serious: No
  Sender: FDA-Public Use
  Company Number: US-009507513-1209USA005118

PATIENT

DRUGS (1)
  1. IMPLANON [Suspect]
     Dosage: 1 DF, 1 rod up to 3 years
     Route: 059
     Dates: start: 20120814

REACTIONS (3)
  - Back pain [Unknown]
  - Headache [Unknown]
  - Metrorrhagia [Unknown]
